FAERS Safety Report 22911340 (Version 2)
Quarter: 2023Q4

REPORT INFORMATION
  Report Type: Spontaneous
  Country: US (occurrence: None)
  Receive Date: 20230906
  Receipt Date: 20231002
  Transmission Date: 20240110
  Serious: Yes (Congenital Anomaly)
  Sender: FDA-Public Use
  Company Number: US-ROCHE-3415453

PATIENT

DRUGS (1)
  1. RITUXAN [Suspect]
     Active Substance: RITUXIMAB
     Indication: Product used for unknown indication
     Dosage: PATIENT MOTHER RECEIVED 15 ROUNDS OF RITUXAN. MOST RECENT DOSES 1000MG ON 09/JUN/2022 AND 3/OCT/202
     Route: 064

REACTIONS (2)
  - Talipes [Unknown]
  - Foetal exposure during pregnancy [Unknown]
